FAERS Safety Report 10701179 (Version 1)
Quarter: 2014Q4

REPORT INFORMATION
  Report Type: Spontaneous
  Country: US (occurrence: None)
  Receive Date: 20141230
  Receipt Date: 20141230
  Transmission Date: 20150529
  Serious: Yes (Other)
  Sender: FDA-Public Use
  Company Number: ABR_01476_2014

PATIENT
  Age: 86 Year
  Sex: Male
  Weight: 71.67 kg

DRUGS (15)
  1. LISINOPRIL. [Concomitant]
     Active Substance: LISINOPRIL
  2. PLAVIX [Concomitant]
     Active Substance: CLOPIDOGREL BISULFATE
  3. VITAMINS WITH MINERALS [Concomitant]
     Active Substance: MINERALS\VITAMINS
  4. VICODIN [Concomitant]
     Active Substance: ACETAMINOPHEN\HYDROCODONE BITARTRATE
  5. NITROLINGUAL [Suspect]
     Active Substance: NITROGLYCERIN
     Indication: ANGINA PECTORIS
     Dosage: (DF SUBLINGUAL )
  6. AVODART [Concomitant]
     Active Substance: DUTASTERIDE
  7. CRESTOR [Concomitant]
     Active Substance: ROSUVASTATIN CALCIUM
  8. ASA [Concomitant]
     Active Substance: ASPIRIN
  9. HYDROCHLOROTHIAZIDE. [Concomitant]
     Active Substance: HYDROCHLOROTHIAZIDE
  10. LEXAPRO [Concomitant]
     Active Substance: ESCITALOPRAM OXALATE
  11. AMLODIPIN [Concomitant]
     Active Substance: AMLODIPINE BESYLATE
  12. GABAPENTIN. [Concomitant]
     Active Substance: GABAPENTIN
  13. BENADRYL / 00000402/ [Concomitant]
  14. METOPROLOL [Concomitant]
     Active Substance: METOPROLOL
  15. FLOMAX / 00889901 / [Concomitant]

REACTIONS (3)
  - Angina pectoris [None]
  - Product quality issue [None]
  - Drug ineffective [None]

NARRATIVE: CASE EVENT DATE: 2013
